FAERS Safety Report 11002607 (Version 1)
Quarter: 2015Q2

REPORT INFORMATION
  Report Type: Spontaneous
  Country: US (occurrence: US)
  Receive Date: 20150408
  Receipt Date: 20150408
  Transmission Date: 20150821
  Serious: No
  Sender: FDA-Public Use
  Company Number: US-GLAXOSMITHKLINE-US2015046275

PATIENT
  Age: 62 Year
  Sex: Female

DRUGS (1)
  1. ALLI [Suspect]
     Active Substance: ORLISTAT
     Indication: WEIGHT LOSS DIET
     Dosage: UNK

REACTIONS (6)
  - Constipation [Unknown]
  - Steatorrhoea [Recovered/Resolved]
  - Frequent bowel movements [Recovered/Resolved]
  - Treatment noncompliance [Unknown]
  - Drug administration error [Unknown]
  - Weight increased [Not Recovered/Not Resolved]
